FAERS Safety Report 5540541-7 (Version None)
Quarter: 2007Q4

REPORT INFORMATION
  Report Type: 
  Country: None (occurrence: None)
  Receive Date: 20071129
  Receipt Date: 20070702
  Transmission Date: 20080405
  Serious: Yes (Hospitalization)
  Sender: FDA-Public Use
  Company Number: US200704005177

PATIENT
  Age: 49 Year
  Sex: Female
  Weight: 93.9 kg

DRUGS (6)
  1. ZYPREXA [Suspect]
     Dosage: 25 MG, ORAL; 2.5 MG, ORAL
     Route: 048
     Dates: start: 19970101, end: 20050101
  2. DEPAKOTE [Concomitant]
  3. WELLBUTRIN [Concomitant]
  4. SEROQUEL [Concomitant]
  5. ZOLOFT [Concomitant]
  6. ABILIFY [Concomitant]

REACTIONS (6)
  - BLOOD CHOLESTEROL ABNORMAL [None]
  - BLOOD TRIGLYCERIDES INCREASED [None]
  - DIABETES MELLITUS [None]
  - HYPERGLYCAEMIA [None]
  - HYPERTENSION [None]
  - OVERDOSE [None]
